FAERS Safety Report 8267320 (Version 2)
Quarter: 2013Q2

REPORT INFORMATION
  Report Type: Spontaneous
  Country: US (occurrence: None)
  Receive Date: 20111114
  Receipt Date: 20130313
  Transmission Date: 20140414
  Serious: Yes (Other)
  Sender: FDA-Public Use
  Company Number: 1000024744

PATIENT
  Age: 56 Year
  Sex: Female
  Weight: 90.7 kg

DRUGS (3)
  1. SAVELLA [Suspect]
     Indication: FIBROMYALGIA
     Dates: start: 201108, end: 201109
  2. LEXAPRO (ESCITALOPRAM OXALATE (ESCITALOPRAM OXALATE) [Concomitant]
  3. RELPAX (ELETRIPTAN HYDROBROMIDE) (ELETRIPTAN HYDROBROMIDE) [Concomitant]

REACTIONS (1)
  - SEROTONIN SYNDROME [None]
